FAERS Safety Report 11472522 (Version 2)
Quarter: 2015Q3

REPORT INFORMATION
  Report Type: Spontaneous
  Country: US (occurrence: US)
  Receive Date: 20150908
  Receipt Date: 20150929
  Transmission Date: 20151125
  Serious: No
  Sender: FDA-Public Use
  Company Number: US-TEVA-585035USA

PATIENT
  Sex: Male

DRUGS (11)
  1. VITAMIN D [Concomitant]
     Active Substance: CHOLECALCIFEROL
  2. ASPIRIN. [Concomitant]
     Active Substance: ASPIRIN
  3. AMPYRA [Concomitant]
     Active Substance: DALFAMPRIDINE
  4. COPAXONE [Suspect]
     Active Substance: GLATIRAMER ACETATE
     Indication: MULTIPLE SCLEROSIS
     Route: 058
     Dates: start: 20140615
  5. SIMVASTATIN. [Concomitant]
     Active Substance: SIMVASTATIN
  6. FLUOXETINE [Concomitant]
     Active Substance: FLUOXETINE\FLUOXETINE HYDROCHLORIDE
  7. METFORMIN [Concomitant]
     Active Substance: METFORMIN HYDROCHLORIDE
  8. GABAPENTIN. [Concomitant]
     Active Substance: GABAPENTIN
  9. LISINOPRIL. [Concomitant]
     Active Substance: LISINOPRIL
  10. ETODOLAC. [Concomitant]
     Active Substance: ETODOLAC
  11. GLIPIZIDE. [Concomitant]
     Active Substance: GLIPIZIDE

REACTIONS (1)
  - Drug dose omission [Unknown]
